FAERS Safety Report 9943657 (Version 1)
Quarter: 2014Q1

REPORT INFORMATION
  Report Type: Report from Study
  Country: US (occurrence: US)
  Receive Date: 20140303
  Receipt Date: 20140303
  Transmission Date: 20141002
  Serious: No
  Sender: FDA-Public Use
  Company Number: US-ABBVIE-13P-163-1048337-00

PATIENT
  Age: 64 Year
  Sex: Male

DRUGS (6)
  1. HUMIRA [Suspect]
     Indication: CROHN^S DISEASE
     Dates: start: 20121126
  2. PENTASA [Concomitant]
     Indication: COLITIS
  3. 6-MP [Concomitant]
     Indication: CROHN^S DISEASE
  4. ENTOCORT [Concomitant]
     Indication: CROHN^S DISEASE
  5. PRAVASTATION [Concomitant]
     Indication: BLOOD CHOLESTEROL
  6. UNKNOWN MEDICATIONS [Concomitant]
     Indication: PRODUCT USED FOR UNKNOWN INDICATION

REACTIONS (1)
  - Injection site mass [Recovered/Resolved]
